FAERS Safety Report 24926677 (Version 1)
Quarter: 2025Q1

REPORT INFORMATION
  Report Type: Spontaneous
  Country: IN (occurrence: IN)
  Receive Date: 20250205
  Receipt Date: 20250205
  Transmission Date: 20250409
  Serious: Yes (Other)
  Sender: GLAND PHARMA LTD
  Company Number: IN-GLANDPHARMA-IN-2025GLNLIT00156

PATIENT
  Age: 35 Year
  Sex: Female

DRUGS (4)
  1. DEXAMETHASONE SODIUM PHOSPHATE [Suspect]
     Active Substance: DEXAMETHASONE SODIUM PHOSPHATE
     Indication: Underweight
     Route: 065
  2. DEXAMETHASONE SODIUM PHOSPHATE [Suspect]
     Active Substance: DEXAMETHASONE SODIUM PHOSPHATE
     Indication: General physical condition abnormal
     Route: 065
  3. CYPROHEPTADINE [Suspect]
     Active Substance: CYPROHEPTADINE
     Indication: Underweight
     Route: 065
  4. CYPROHEPTADINE [Suspect]
     Active Substance: CYPROHEPTADINE
     Indication: General physical condition abnormal
     Route: 065

REACTIONS (29)
  - Drug dependence [Unknown]
  - Diabetes mellitus [Recovered/Resolved]
  - Withdrawal syndrome [Recovered/Resolved]
  - Anxiety [Recovered/Resolved]
  - Palpitations [Recovered/Resolved]
  - Irritability [Recovered/Resolved]
  - Insomnia [Recovered/Resolved]
  - Decreased appetite [Recovered/Resolved]
  - Tremor [Recovered/Resolved]
  - Dizziness [Recovered/Resolved]
  - Nausea [Recovered/Resolved]
  - Malaise [Recovered/Resolved]
  - Weight decreased [Recovered/Resolved]
  - Dyspepsia [Recovered/Resolved]
  - Regurgitation [Recovered/Resolved]
  - Diarrhoea [Recovered/Resolved]
  - Cough [Recovered/Resolved]
  - Nasopharyngitis [Recovered/Resolved]
  - Fatigue [Recovered/Resolved]
  - Asthenia [Recovered/Resolved]
  - Abdominal distension [Recovered/Resolved]
  - Limb asymmetry [Recovered/Resolved]
  - Central obesity [Recovered/Resolved]
  - Depression [Recovered/Resolved]
  - Restlessness [Recovered/Resolved]
  - Hypertension [Recovered/Resolved]
  - Tachycardia [Recovered/Resolved]
  - Hepatic enzyme increased [Recovered/Resolved]
  - Product use in unapproved indication [Unknown]
